FAERS Safety Report 10302450 (Version 1)
Quarter: 2014Q3

REPORT INFORMATION
  Report Type: Spontaneous
  Country: US (occurrence: None)
  Receive Date: 20140709
  Receipt Date: 20140709
  Transmission Date: 20150326
  Serious: Yes (Life-Threatening, Hospitalization)
  Sender: FDA-Public Use
  Company Number: 2014NUEUSA00351

PATIENT
  Age: 54 Year
  Sex: Male
  Weight: 90.7 kg

DRUGS (11)
  1. ASPIRIN (ACETYLSALICYLIC ACID) [Concomitant]
     Active Substance: ASPIRIN
  2. GABAPENTIN (GABAPENTIN) [Concomitant]
     Active Substance: GABAPENTIN
  3. TAMSULOSIN (TAMSULOSIN HYDROCHLORIDE) [Concomitant]
  4. PRAVASTATIN (PRAVASTATIN SODIUM) [Concomitant]
  5. VITAMIN D (COLECALCIFEROL) [Concomitant]
  6. SEROQUEL [Concomitant]
     Active Substance: QUETIAPINE FUMARATE
  7. HYDRALAZINE HCL (HYDRALAZINE HYDROCHLORIDE) [Concomitant]
  8. NIASPAN (NICOTINIC ACID) [Concomitant]
  9. LISINOPRIL (LISINOPRIL DIHYDRATE) (UNKNOWN [Concomitant]
     Active Substance: LISINOPRIL
  10. NUEDEXTA [Suspect]
     Active Substance: DEXTROMETHORPHAN HYDROBROMIDE\QUINIDINE SULFATE
     Indication: AFFECT LABILITY
     Dosage: 1 CAP, Q12 HRS, ORAL
     Route: 048
     Dates: start: 201207, end: 201212
  11. LABETALOL HCL (LABETALOL HYDROCHLORIDE) [Concomitant]

REACTIONS (8)
  - Insomnia [None]
  - Suicide attempt [None]
  - Affect lability [None]
  - Pain [None]
  - Disorientation [None]
  - Depression [None]
  - Condition aggravated [None]
  - Aphasia [None]

NARRATIVE: CASE EVENT DATE: 201212
